FAERS Safety Report 12922493 (Version 1)
Quarter: 2016Q4

REPORT INFORMATION
  Report Type: Spontaneous
  Country: US (occurrence: US)
  Receive Date: 20161109
  Receipt Date: 20161109
  Transmission Date: 20170207
  Serious: No
  Sender: FDA-Public Use
  Company Number: US-ELI_LILLY_AND_COMPANY-US201610010770

PATIENT
  Age: 52 Year
  Sex: Male

DRUGS (1)
  1. ZYPREXA [Suspect]
     Active Substance: OLANZAPINE
     Indication: AGGRESSION
     Dosage: 2.5 MG, UNK
     Route: 065
     Dates: start: 20160401

REACTIONS (3)
  - Drug tolerance [Unknown]
  - Off label use [Not Recovered/Not Resolved]
  - Obsessive-compulsive disorder [Unknown]

NARRATIVE: CASE EVENT DATE: 20160401
